FAERS Safety Report 23663071 (Version 1)
Quarter: 2024Q1

REPORT INFORMATION
  Report Type: Report from Study
  Country: CO (occurrence: CO)
  Receive Date: 20240322
  Receipt Date: 20240322
  Transmission Date: 20240409
  Serious: Yes (Hospitalization)
  Sender: FDA-Public Use
  Company Number: CO-AstraZeneca-2024A063686

PATIENT
  Age: 75 Day
  Sex: Female

DRUGS (1)
  1. SYNAGIS [Suspect]
     Active Substance: PALIVIZUMAB
     Indication: Antiviral prophylaxis
     Dosage: MONTHLY
     Route: 030
     Dates: start: 20240225

REACTIONS (2)
  - Bronchiolitis [Recovering/Resolving]
  - Respiratory syncytial virus infection [Recovering/Resolving]

NARRATIVE: CASE EVENT DATE: 20240303
